FAERS Safety Report 19115718 (Version 1)
Quarter: 2021Q2

REPORT INFORMATION
  Report Type: Spontaneous
  Country: US (occurrence: US)
  Receive Date: 20210409
  Receipt Date: 20210409
  Transmission Date: 20210717
  Serious: Yes (Other)
  Sender: FDA-Public Use
  Company Number: US-PFIZER INC-2021376779

PATIENT
  Age: 42 Year
  Sex: Male

DRUGS (5)
  1. SILVER SULFADIAZENE [Suspect]
     Active Substance: SILVER SULFADIAZINE
     Indication: CEREBRAL TOXOPLASMOSIS
     Dosage: 1.5 G EVERY 6 HOURS
  2. PYRIMETHAMINE [Concomitant]
     Active Substance: PYRIMETHAMINE
     Indication: CEREBRAL TOXOPLASMOSIS
     Dosage: 100 MG, DAILY
  3. TRIMETHOPRIM SULFAMETHOXAZOLE [Concomitant]
     Active Substance: SULFAMETHOXAZOLE\TRIMETHOPRIM
     Indication: PNEUMOCYSTIS JIROVECII PNEUMONIA
     Dosage: THREE TIMES WEEKLY
  4. INVIRASE [Concomitant]
     Active Substance: SAQUINAVIR MESYLATE
     Indication: ANTIRETROVIRAL THERAPY
     Dosage: 600 MG THREE TIMES A DAY
     Dates: start: 199608
  5. FOLINIC ACID [Concomitant]
     Active Substance: LEUCOVORIN
     Indication: CEREBRAL TOXOPLASMOSIS
     Dosage: 25 MG, DAILY

REACTIONS (3)
  - Treatment noncompliance [Unknown]
  - Crystalluria [Recovered/Resolved]
  - Acute kidney injury [Recovered/Resolved]
